FAERS Safety Report 20125015 (Version 1)
Quarter: 2021Q4

REPORT INFORMATION
  Report Type: Spontaneous
  Country: US (occurrence: None)
  Receive Date: 20211126
  Receipt Date: 20211126
  Transmission Date: 20220303
  Serious: No
  Sender: FDA-Public Use
  Company Number: None

PATIENT
  Sex: Male

DRUGS (1)
  1. TRUVADA [Suspect]
     Active Substance: EMTRICITABINE\TENOFOVIR DISOPROXIL FUMARATE
     Indication: Exposure to communicable disease
     Dosage: OTHER QUANTITY : 200/300MG;?FREQUENCY : DAILY;?
     Route: 048
     Dates: start: 201904

REACTIONS (1)
  - Therapy cessation [None]
